FAERS Safety Report 20839913 (Version 1)
Quarter: 2022Q2

REPORT INFORMATION
  Report Type: Spontaneous
  Country: TL (occurrence: TL)
  Receive Date: 20220517
  Receipt Date: 20220517
  Transmission Date: 20220721
  Serious: Yes (Other)
  Sender: FDA-Public Use
  Company Number: TL-BAYER-2021-204146

PATIENT
  Age: 22 Year
  Sex: Female
  Weight: 45 kg

DRUGS (1)
  1. LEVONORGESTREL [Suspect]
     Active Substance: LEVONORGESTREL
     Indication: Contraception
     Route: 059
     Dates: start: 20170524, end: 20210707

REACTIONS (3)
  - Pregnancy with implant contraceptive [Unknown]
  - Amenorrhoea [Unknown]
  - Drug ineffective [Unknown]

NARRATIVE: CASE EVENT DATE: 20210707
